FAERS Safety Report 8544449 (Version 2)
Quarter: 2013Q4

REPORT INFORMATION
  Report Type: Spontaneous
  Country: FR (occurrence: FR)
  Receive Date: 20120503
  Receipt Date: 20131107
  Transmission Date: 20140711
  Serious: Yes (Hospitalization)
  Sender: FDA-Public Use
  Company Number: FR-PFIZER INC-2012105584

PATIENT
  Age: 30 Year
  Sex: Female

DRUGS (1)
  1. TAZOCILLINE [Suspect]
     Indication: LUNG DISORDER
     Dosage: 1 DF, 3X/DAY
     Route: 042
     Dates: start: 20120307, end: 20120313

REACTIONS (3)
  - Haemolytic anaemia [Recovered/Resolved]
  - Blood lactate dehydrogenase increased [Recovered/Resolved]
  - Hyperbilirubinaemia [Recovered/Resolved]
